FAERS Safety Report 18000762 (Version 1)
Quarter: 2020Q3

REPORT INFORMATION
  Report Type: Spontaneous
  Country: GB (occurrence: GB)
  Receive Date: 20200709
  Receipt Date: 20200709
  Transmission Date: 20201103
  Serious: Yes (Other)
  Sender: FDA-Public Use
  Company Number: GB-MYLANLABS-2020M1060809

PATIENT
  Age: 85 Year
  Sex: Female

DRUGS (2)
  1. WARFARIN [Suspect]
     Active Substance: WARFARIN
     Indication: CARDIAC VALVE PROSTHESIS USER
     Dosage: 7 MILLIGRAM, QD
     Route: 048
  2. FLUCLOXACILLIN SODIUM [Suspect]
     Active Substance: FLUCLOXACILLIN SODIUM
     Indication: ENDOCARDITIS BACTERIAL
     Dosage: 2000 MILLIGRAM, QD
     Route: 048

REACTIONS (1)
  - Anticoagulation drug level below therapeutic [Unknown]
